FAERS Safety Report 18166135 (Version 1)
Quarter: 2020Q3

REPORT INFORMATION
  Report Type: Spontaneous
  Country: GB (occurrence: GB)
  Receive Date: 20200819
  Receipt Date: 20200819
  Transmission Date: 20201103
  Serious: Yes (Death)
  Sender: FDA-Public Use
  Company Number: GB-BIO PRODUCTS LABORATORY LTD-2088773

PATIENT
  Sex: Male

DRUGS (2)
  1. HYDROCORTISONE ?PRE?MEDICATION (TRANSPLACENTAL) [Concomitant]
  2. GENERIC IVIG [Suspect]
     Active Substance: HUMAN IMMUNOGLOBULIN G
     Indication: HEART BLOCK CONGENITAL
     Route: 042

REACTIONS (4)
  - Foetal exposure during pregnancy [Fatal]
  - Product use in unapproved indication [Fatal]
  - Drug ineffective for unapproved indication [Fatal]
  - Heart block congenital [Fatal]
